FAERS Safety Report 8797489 (Version 3)
Quarter: 2015Q2

REPORT INFORMATION
  Report Type: Report from Study
  Country: US (occurrence: US)
  Receive Date: 20120919
  Receipt Date: 20150403
  Transmission Date: 20150821
  Serious: Yes (Death)
  Sender: FDA-Public Use
  Company Number: US-ROCHE-1128467

PATIENT
  Sex: Male

DRUGS (12)
  1. AVASTIN [Suspect]
     Active Substance: BEVACIZUMAB
     Indication: LUNG NEOPLASM MALIGNANT
     Route: 042
     Dates: start: 20070206, end: 20070403
  2. VINORELBINE [Concomitant]
     Active Substance: VINORELBINE\VINORELBINE TARTRATE
     Route: 042
  3. POTASSIUM CHLORIDE. [Concomitant]
     Active Substance: POTASSIUM CHLORIDE
     Route: 042
  4. CISPLATIN. [Concomitant]
     Active Substance: CISPLATIN
     Route: 042
  5. ALOXI [Concomitant]
     Active Substance: PALONOSETRON HYDROCHLORIDE
     Route: 042
  6. PEGFILGRASTIM [Concomitant]
     Active Substance: PEGFILGRASTIM
     Route: 065
  7. ARANESP [Concomitant]
     Active Substance: DARBEPOETIN ALFA
     Route: 058
  8. TARCEVA [Suspect]
     Active Substance: ERLOTINIB HYDROCHLORIDE
     Indication: PRODUCT USED FOR UNKNOWN INDICATION
     Route: 065
  9. TAXOTERE [Concomitant]
     Active Substance: DOCETAXEL
  10. MAGNESIUM SULFATE. [Concomitant]
     Active Substance: MAGNESIUM SULFATE
     Route: 042
  11. MANNITOL. [Concomitant]
     Active Substance: MANNITOL
     Route: 065
  12. DECADRON [Concomitant]
     Active Substance: DEXAMETHASONE
     Route: 042

REACTIONS (16)
  - Injection site erythema [Unknown]
  - Decreased appetite [Unknown]
  - Anxiety [Unknown]
  - Dysgeusia [Unknown]
  - Anaemia [Unknown]
  - Fatigue [Unknown]
  - Death [Fatal]
  - Disease progression [Unknown]
  - Drug ineffective [Unknown]
  - Neutropenia [Unknown]
  - Injection site pain [Unknown]
  - Catheter site pruritus [Unknown]
  - Constipation [Unknown]
  - Pain [Unknown]
  - Nausea [Recovered/Resolved]
  - Vomiting [Unknown]
